FAERS Safety Report 8202069-5 (Version None)
Quarter: 2012Q1

REPORT INFORMATION
  Report Type: 
  Country: None (occurrence: None)
  Receive Date: 20120312
  Receipt Date: 20120307
  Transmission Date: 20120608
  Serious: Yes (Hospitalization, Disabling)
  Sender: FDA-Public Use
  Company Number: US-MERCK-1106USA03365

PATIENT
  Age: 57 Year
  Sex: Female
  Weight: 73 kg

DRUGS (11)
  1. ALENDRONATE SODIUM [Suspect]
     Indication: OSTEOPENIA
     Route: 048
     Dates: start: 20080501, end: 20100617
  2. CALCIUM (UNSPECIFIED) [Concomitant]
     Route: 065
     Dates: start: 19960101
  3. ACTONEL [Suspect]
     Indication: OSTEOPENIA
     Route: 048
     Dates: start: 20010401, end: 20011201
  4. ACTONEL [Suspect]
     Route: 048
     Dates: start: 20040301, end: 20050401
  5. FOSAMAX [Suspect]
     Indication: OSTEOPENIA
     Route: 048
     Dates: start: 20050401, end: 20080501
  6. ACTONEL [Suspect]
     Route: 048
     Dates: start: 20030301, end: 20040301
  7. MULTI-VITAMINS [Concomitant]
     Route: 065
     Dates: start: 20070101
  8. ACTONEL [Suspect]
     Route: 048
     Dates: start: 20011201, end: 20020301
  9. ACTONEL [Suspect]
     Route: 048
     Dates: start: 20020301, end: 20030301
  10. FEMHRT [Concomitant]
     Indication: HORMONE REPLACEMENT THERAPY
     Route: 048
     Dates: start: 20030101
  11. FOSAMAX [Suspect]
     Indication: OSTEOPOROSIS
     Route: 048
     Dates: start: 20050401, end: 20080501

REACTIONS (19)
  - FUNGAL INFECTION [None]
  - FLUID RETENTION [None]
  - ASTHMA [None]
  - FALL [None]
  - ANXIETY [None]
  - BLOOD CHOLESTEROL INCREASED [None]
  - GOITRE [None]
  - SINUS DISORDER [None]
  - MUSCLE SPASMS [None]
  - LOW TURNOVER OSTEOPATHY [None]
  - GAIT DISTURBANCE [None]
  - VAGINAL INFECTION [None]
  - DYSPAREUNIA [None]
  - FEMUR FRACTURE [None]
  - JOINT SWELLING [None]
  - ATROPHIC VULVOVAGINITIS [None]
  - TOOTH DISORDER [None]
  - STRESS URINARY INCONTINENCE [None]
  - ALOPECIA [None]
